FAERS Safety Report 4661136-3 (Version None)
Quarter: 2005Q2

REPORT INFORMATION
  Report Type: 
  Country: None (occurrence: None)
  Receive Date: 20050511
  Receipt Date: 20050428
  Transmission Date: 20051028
  Serious: Yes (Other)
  Sender: FDA-Public Use
  Company Number: 2005068508

PATIENT
  Age: 24 Year
  Sex: Female

DRUGS (3)
  1. DEPO-PROVERA [Suspect]
     Indication: CONTRACEPTION
     Dosage: 150 MG (150 MG, 1 ST INJECTION, INTERVAL: TRIMESTRAL)
     Dates: start: 20040601, end: 20040601
  2. DIPYRONE TAB [Concomitant]
  3. DICLOFENAC SODIUM [Concomitant]

REACTIONS (5)
  - GINGIVITIS [None]
  - MENSTRUATION IRREGULAR [None]
  - METRORRHAGIA [None]
  - POST PROCEDURAL COMPLICATION [None]
  - TOOTH EXTRACTION [None]
